FAERS Safety Report 10654218 (Version 1)
Quarter: 2014Q4

REPORT INFORMATION
  Report Type: Spontaneous
  Country: US (occurrence: None)
  Receive Date: 20141205
  Receipt Date: 20141205
  Transmission Date: 20150529
  Serious: No
  Sender: FDA-Public Use
  Company Number: 163-POMAL-14085014

PATIENT
  Age: 84 Year
  Sex: Male
  Weight: 102.06 kg

DRUGS (6)
  1. ECOTRIN(ACETYLSALICYLIC ACID) [Concomitant]
  2. HYDRALAZINE(HYDRALAZINE) [Concomitant]
  3. CARVEDILOL(CARVEDILOL) [Concomitant]
  4. POMALYST [Suspect]
     Active Substance: POMALIDOMIDE
     Indication: PLASMA CELL MYELOMA
     Dosage: 2 MG, 21 IN 21 D, PO
     Route: 048
     Dates: start: 20140222
  5. ROBITUSSIN(GUAIFENESIN) [Concomitant]
  6. OSCAL ULTRA [Concomitant]

REACTIONS (1)
  - Gout [None]

NARRATIVE: CASE EVENT DATE: 201408
